FAERS Safety Report 8941766 (Version 1)
Quarter: 2012Q4

REPORT INFORMATION
  Report Type: 
  Country: SG (occurrence: SG)
  Receive Date: 20121203
  Receipt Date: 20121203
  Transmission Date: 20130627
  Serious: Yes (Hospitalization)
  Sender: FDA-Public Use
  Company Number: PHHY2012SG108139

PATIENT
  Age: 68 Year
  Sex: Male

DRUGS (6)
  1. STALEVO [Suspect]
     Indication: PARKINSON^S DISEASE
     Dosage: 1 DF, QID 4 DF, daily (dose of 150/37.5/200 mg at 7 am, 11 am, 3 pm and 7 pm)
     Route: 048
     Dates: start: 201203, end: 20121119
  2. MADOPAR HBS [Concomitant]
     Indication: PARKINSON^S DISEASE
     Dosage: 250 mg, daily (250 mg before sleep)
     Route: 048
     Dates: start: 201203, end: 20121119
  3. NORVASC [Concomitant]
     Dosage: 10 mg, daily
     Route: 048
     Dates: start: 201203
  4. FLUVOXAMINE [Concomitant]
     Indication: DEPRESSION
     Dosage: 100 mg, daily (100 mg before sleep)
     Route: 048
  5. ASPIRIN [Concomitant]
     Indication: CEREBROVASCULAR ACCIDENT PROPHYLAXIS
     Dosage: 100 mg daily
     Route: 048
     Dates: start: 20121121
  6. ENALAPRIL [Concomitant]
     Dosage: 5 mg, UNK
     Route: 048
     Dates: start: 20121121

REACTIONS (4)
  - Ischaemic stroke [Recovering/Resolving]
  - Dysphagia [Not Recovered/Not Resolved]
  - Hypertension [Recovering/Resolving]
  - Musculoskeletal stiffness [Unknown]
